FAERS Safety Report 9127507 (Version 1)
Quarter: 2013Q1

REPORT INFORMATION
  Report Type: Spontaneous
  Country: US (occurrence: US)
  Receive Date: 20130228
  Receipt Date: 20130228
  Transmission Date: 20140127
  Serious: No
  Sender: FDA-Public Use
  Company Number: US-GLAXOSMITHKLINE-A0980632A

PATIENT
  Age: 15 Year
  Sex: Female

DRUGS (3)
  1. LAMICTAL [Suspect]
     Indication: CONVULSION
     Route: 048
     Dates: start: 20110705, end: 20120507
  2. VIMPAT [Concomitant]
  3. BIRTH CONTROL [Concomitant]

REACTIONS (3)
  - Vision blurred [Recovered/Resolved]
  - Dizziness [Recovered/Resolved]
  - Drug administration error [Unknown]
